FAERS Safety Report 4360227-4 (Version None)
Quarter: 2004Q2

REPORT INFORMATION
  Report Type: 
  Country: None (occurrence: None)
  Receive Date: 20040513
  Receipt Date: 20040506
  Transmission Date: 20050107
  Serious: Yes (Hospitalization)
  Sender: FDA-Public Use
  Company Number: FRWYE744706MAY04

PATIENT
  Age: 56 Year
  Sex: Male

DRUGS (3)
  1. TAZOCILLINE (PIPERACILLIN/TAZOBACTAM, INJECTION) [Suspect]
     Dosage: 4 G 3X PER 1 DAY
     Route: 042
     Dates: start: 20040305, end: 20040322
  2. STABLON (TIANEPTINE) [Concomitant]
  3. ACETAMINOPHEN [Concomitant]

REACTIONS (10)
  - ALANINE AMINOTRANSFERASE INCREASED [None]
  - ASPARTATE AMINOTRANSFERASE INCREASED [None]
  - BLOOD ALKALINE PHOSPHATASE INCREASED [None]
  - CHILLS [None]
  - CONDITION AGGRAVATED [None]
  - INFUSION RELATED REACTION [None]
  - NEUTROPENIA [None]
  - PYREXIA [None]
  - THROMBOCYTOPENIA [None]
  - TRANSAMINASES INCREASED [None]
